FAERS Safety Report 12119029 (Version 1)
Quarter: 2016Q1

REPORT INFORMATION
  Report Type: Spontaneous
  Country: US (occurrence: None)
  Receive Date: 20160225
  Receipt Date: 20160225
  Transmission Date: 20160526
  Serious: No
  Sender: FDA-Public Use
  Company Number: None

PATIENT
  Age: 33 Year
  Sex: Male

DRUGS (1)
  1. STELARA [Suspect]
     Active Substance: USTEKINUMAB
     Indication: PSORIASIS
     Dosage: 90MG AT WEEKS 0, 4 Q12WK INJECTION (SQ)
     Route: 058
     Dates: start: 20121011

REACTIONS (2)
  - Condition aggravated [None]
  - Stress [None]

NARRATIVE: CASE EVENT DATE: 20160224
